FAERS Safety Report 17469807 (Version 1)
Quarter: 2020Q1

REPORT INFORMATION
  Report Type: Spontaneous
  Country: US (occurrence: US)
  Receive Date: 20200227
  Receipt Date: 20200227
  Transmission Date: 20200409
  Serious: No
  Sender: FDA-Public Use
  Company Number: US-OXFORD PHARMACEUTICALS, LLC-2019OXF00040

PATIENT
  Age: 65 Year
  Sex: Female
  Weight: 77.1 kg

DRUGS (2)
  1. METHOCARBAMOL. [Suspect]
     Active Substance: METHOCARBAMOL
     Indication: LIGAMENT SPRAIN
     Dosage: UNK
     Dates: start: 201901
  2. XELJANZ XR [Concomitant]
     Active Substance: TOFACITINIB CITRATE
     Dosage: 11 MG, 1X/DAY
     Route: 048
     Dates: start: 2017

REACTIONS (3)
  - Somnolence [Unknown]
  - Therapeutic product effect incomplete [Unknown]
  - Muscle spasms [Unknown]

NARRATIVE: CASE EVENT DATE: 201901
